FAERS Safety Report 5996514-3 (Version None)
Quarter: 2008Q4

REPORT INFORMATION
  Report Type: 
  Country: None (occurrence: None)
  Receive Date: 20081212
  Receipt Date: 20080623
  Transmission Date: 20090506
  Serious: No
  Sender: FDA-Public Use
  Company Number: US-AMGEN-KDL285231

PATIENT
  Sex: Male
  Weight: 115.8 kg

DRUGS (9)
  1. ENBREL [Suspect]
     Indication: PSORIASIS
     Route: 058
     Dates: start: 20061208
  2. ENBREL [Suspect]
     Indication: PSORIATIC ARTHROPATHY
  3. CIALIS [Concomitant]
     Dates: start: 20061001
  4. LEVOTHYROXINE SODIUM [Concomitant]
     Dates: start: 20071001
  5. DOVONEX [Concomitant]
  6. UNSPECIFIED TOPICAL PRODUCT [Concomitant]
     Route: 061
     Dates: start: 20070306
  7. PREDNICARBATE [Concomitant]
     Route: 061
     Dates: start: 20060714
  8. AMCINONIDE [Concomitant]
     Dates: start: 20070620
  9. UNSPECIFIED MEDICATION [Concomitant]

REACTIONS (7)
  - BLOOD GLUCOSE INCREASED [None]
  - BLOOD TEST ABNORMAL [None]
  - CHOLELITHIASIS [None]
  - HEPATIC ENZYME INCREASED [None]
  - NEPHROLITHIASIS [None]
  - TUBERCULIN TEST POSITIVE [None]
  - URINARY TRACT INFECTION [None]
